FAERS Safety Report 4400791-X (Version None)
Quarter: 2004Q3

REPORT INFORMATION
  Report Type: 
  Country: None (occurrence: None)
  Receive Date: 20040907
  Receipt Date: 20030609
  Transmission Date: 20050211
  Serious: No
  Sender: FDA-Public Use
  Company Number: US-BRISTOL-MYERS SQUIBB COMPANY-12297016

PATIENT
  Age: 71 Year
  Sex: Male
  Weight: 81 kg

DRUGS (9)
  1. COUMADIN [Suspect]
     Indication: ATRIAL FIBRILLATION
     Dosage: DOSAGE: 08-MAY-03: 1/2 OF A 5MG TABLET DAILY 29-MAY-03: 5MG DAILY 05-JUN-03: 7.5MG DAILY
     Route: 048
     Dates: start: 20030508
  2. SOTALOL HCL [Concomitant]
  3. ENALAPRIL MALEATE [Concomitant]
  4. HYDROCHLOROTHIAZIDE [Concomitant]
  5. CARTIA [Concomitant]
  6. SINGULAIR [Concomitant]
  7. PREVACID [Concomitant]
  8. GLUCOSAMINE+CHONDROITIN+MSM [Concomitant]
  9. CHLOR-TRIMETON [Concomitant]

REACTIONS (2)
  - CONTUSION [None]
  - INTERNATIONAL NORMALISED RATIO ABNORMAL [None]
